FAERS Safety Report 15638069 (Version 1)
Quarter: 2018Q4

REPORT INFORMATION
  Report Type: Spontaneous
  Country: US (occurrence: US)
  Receive Date: 20181120
  Receipt Date: 20181120
  Transmission Date: 20190205
  Serious: No
  Sender: FDA-Public Use
  Company Number: US-JNJFOC-20180734726

PATIENT
  Age: 76 Year
  Sex: Female
  Weight: 54 kg

DRUGS (1)
  1. IMBRUVICA [Suspect]
     Active Substance: IBRUTINIB
     Indication: WALDENSTROM^S MACROGLOBULINAEMIA
     Dosage: 420 MG, QD
     Route: 048

REACTIONS (3)
  - Skin haemorrhage [Recovering/Resolving]
  - Skin fissures [Recovering/Resolving]
  - Onychoclasis [Not Recovered/Not Resolved]

NARRATIVE: CASE EVENT DATE: 2017
